FAERS Safety Report 9280424 (Version 2)
Quarter: 2013Q2

REPORT INFORMATION
  Report Type: Spontaneous
  Country: FR (occurrence: FR)
  Receive Date: 20130509
  Receipt Date: 20130617
  Transmission Date: 20140414
  Serious: Yes (Hospitalization, Other)
  Sender: FDA-Public Use
  Company Number: PHHY2013FR044873

PATIENT
  Age: 48 Year
  Sex: Female
  Weight: 69 kg

DRUGS (4)
  1. AMOXICILLIN+CLAVULANATE SANDOZ [Suspect]
     Indication: ANTIBIOTIC PROPHYLAXIS
     Dosage: 2 DF, DAILY
     Route: 048
     Dates: start: 20130502, end: 20130502
  2. LANTUS [Concomitant]
  3. LYRICA [Concomitant]
  4. KLIPAL [Concomitant]

REACTIONS (7)
  - Reaction to drug excipients [Recovered/Resolved]
  - Angioedema [Recovered/Resolved]
  - Dyspnoea [Recovered/Resolved]
  - Rash [Recovered/Resolved]
  - Odynophagia [Recovered/Resolved]
  - Paraesthesia oral [Recovered/Resolved]
  - Lip oedema [Recovered/Resolved]
